FAERS Safety Report 10019302 (Version 2)
Quarter: 2014Q2

REPORT INFORMATION
  Report Type: Spontaneous
  Country: DE (occurrence: DE)
  Receive Date: 20140318
  Receipt Date: 20140418
  Transmission Date: 20141212
  Serious: Yes (Hospitalization)
  Sender: FDA-Public Use
  Company Number: DE-ELI_LILLY_AND_COMPANY-DE201403004262

PATIENT
  Sex: Female

DRUGS (2)
  1. OLANZAPINE [Suspect]
     Indication: SCHIZOPHRENIA, PARANOID TYPE
     Dosage: 10 MG, QD
     Route: 048
  2. ZYPADHERA [Suspect]
     Indication: SCHIZOPHRENIA
     Dosage: 210 MG, UNKNOWN
     Route: 030
     Dates: start: 20140311, end: 20140311

REACTIONS (6)
  - Oedema peripheral [Recovering/Resolving]
  - Erythema [Unknown]
  - Feeling hot [Unknown]
  - Fall [Unknown]
  - Dizziness [Unknown]
  - Oedema peripheral [Recovering/Resolving]
